FAERS Safety Report 7018105-8 (Version None)
Quarter: 2010Q3

REPORT INFORMATION
  Report Type: 
  Country: None (occurrence: None)
  Receive Date: 20100927
  Receipt Date: 20100927
  Transmission Date: 20110219
  Serious: Yes (Other)
  Sender: FDA-Public Use
  Company Number: None

PATIENT
  Age: 43 Year
  Sex: Female
  Weight: 68.0396 kg

DRUGS (1)
  1. TOPIRAMATE [Suspect]
     Indication: TREMOR
     Dosage: ONE TABLET DAILY PO
     Route: 048
     Dates: start: 20100422, end: 20100423

REACTIONS (4)
  - HEADACHE [None]
  - TREMOR [None]
  - VISION BLURRED [None]
  - VISUAL IMPAIRMENT [None]
